FAERS Safety Report 7245177-8 (Version None)
Quarter: 2011Q1

REPORT INFORMATION
  Report Type: 
  Country: None (occurrence: None)
  Receive Date: 20110126
  Receipt Date: 20110113
  Transmission Date: 20110831
  Serious: Yes (Hospitalization, Other)
  Sender: FDA-Public Use
  Company Number: PHHY2011BR02768

PATIENT
  Sex: Female

DRUGS (6)
  1. SIMVASTATIN [Concomitant]
     Indication: LEFT VENTRICLE OUTFLOW TRACT OBSTRUCTION
     Dosage: 40 MG, TWO TABLETS DAILY
     Route: 048
  2. SERTRALINE HYDROCHLORIDE [Concomitant]
     Indication: DEPRESSION
     Dosage: 50 MG, ONE TABLET DAILY
  3. AAS [Concomitant]
     Indication: LEFT VENTRICLE OUTFLOW TRACT OBSTRUCTION
     Dosage: 100 MG, 4 TABLETS DAILY
     Route: 048
  4. RIVOTRIL [Concomitant]
     Indication: ANXIETY
     Dosage: 2 MG, ONE TABLET DAILY
     Route: 048
  5. DIOVAN HCT [Suspect]
     Indication: HYPERTENSION
     Dosage: ONE TABLET (160/12.5 MG) DAILY
     Route: 048
  6. ATENOLOL [Concomitant]
     Indication: HYPERTENSION
     Dosage: 100 MG, TWO TABLETS DAILY
     Route: 048

REACTIONS (4)
  - DEPRESSION [None]
  - DEPRESSED MOOD [None]
  - ANXIETY [None]
  - ANGINA PECTORIS [None]
